FAERS Safety Report 6846192-6 (Version None)
Quarter: 2010Q3

REPORT INFORMATION
  Report Type: 
  Country: None (occurrence: None)
  Receive Date: 20100715
  Receipt Date: 20070910
  Transmission Date: 20110219
  Serious: No
  Sender: FDA-Public Use
  Company Number: US-PFIZER INC-2007077040

PATIENT
  Sex: Female
  Weight: 69.1 kg

DRUGS (6)
  1. CHANTIX [Suspect]
     Indication: SMOKING CESSATION THERAPY
     Dates: start: 20070801, end: 20070801
  2. WELLBUTRIN [Concomitant]
  3. LISINOPRIL [Concomitant]
  4. VERAPAMIL [Concomitant]
  5. DRUG, UNSPECIFIED [Concomitant]
     Indication: BLOOD CHOLESTEROL INCREASED
  6. NEXIUM [Concomitant]
     Indication: GASTROOESOPHAGEAL REFLUX DISEASE

REACTIONS (5)
  - HERPES ZOSTER [None]
  - INAPPROPRIATE SCHEDULE OF DRUG ADMINISTRATION [None]
  - NAUSEA [None]
  - SLEEP DISORDER [None]
  - STRESS [None]
